FAERS Safety Report 20711642 (Version 1)
Quarter: 2022Q2

REPORT INFORMATION
  Report Type: Spontaneous
  Country: US (occurrence: US)
  Receive Date: 20220414
  Receipt Date: 20220414
  Transmission Date: 20220721
  Serious: No
  Sender: FDA-Public Use
  Company Number: US-PFIZER INC-202100979742

PATIENT
  Age: 46 Year
  Sex: Female

DRUGS (2)
  1. XELJANZ [Suspect]
     Active Substance: TOFACITINIB CITRATE
     Indication: Autoimmune disorder
     Dosage: 10 MG, 2X/DAY (10 MG PO BID (60 TABLETS))
     Route: 048
  2. XELJANZ [Suspect]
     Active Substance: TOFACITINIB CITRATE
     Indication: Connective tissue disorder
     Dosage: 10 MG
     Dates: start: 20210726

REACTIONS (2)
  - Nausea [Unknown]
  - Off label use [Unknown]
